FAERS Safety Report 7466510-8 (Version None)
Quarter: 2011Q2

REPORT INFORMATION
  Report Type: 
  Country: None (occurrence: None)
  Receive Date: 20110509
  Receipt Date: 20100816
  Transmission Date: 20111010
  Serious: No
  Sender: FDA-Public Use
  Company Number: US-ALEXION-A201001019

PATIENT

DRUGS (5)
  1. SOLIRIS [Suspect]
     Dosage: 1200 MG, Q2W
     Route: 042
  2. SOLIRIS [Suspect]
     Dosage: 900 MG, UNK
     Route: 042
     Dates: start: 20091124
  3. COUMADIN [Concomitant]
     Dosage: 5 MG, QD
     Route: 048
  4. AMBIEN [Concomitant]
     Dosage: 10 MG, QD
     Route: 048
  5. SOLIRIS [Suspect]
     Indication: PAROXYSMAL NOCTURNAL HAEMOGLOBINURIA
     Dosage: 600 MG, UNK
     Route: 042
     Dates: start: 20091027

REACTIONS (1)
  - ERECTILE DYSFUNCTION [None]
